FAERS Safety Report 7936145-9 (Version None)
Quarter: 2011Q4

REPORT INFORMATION
  Report Type: 
  Country: None (occurrence: None)
  Receive Date: 20111121
  Receipt Date: 20111111
  Transmission Date: 20120403
  Serious: Yes (Death)
  Sender: FDA-Public Use
  Company Number: KR-ACCORD-011248

PATIENT
  Age: 72 Year
  Sex: Male

DRUGS (6)
  1. MITOTANE(MITOTANE) [Suspect]
     Indication: ADRENOCORTICAL CARCINOMA
     Dosage: 2.00-G-1.00 TIMES PER-4.0WEEKS /ORAL
     Route: 048
  2. SPIRONOLACTONE [Concomitant]
  3. POTASSIUM CHLORIDE [Concomitant]
  4. ETOPOSIDE [Suspect]
     Indication: ADRENOCORTICAL CARCINOMA
     Dosage: 100.00-MG/M2 /INTRAVENOUS (NOT OTHERWISE SPECIFIED)
     Route: 042
  5. CISPLATIN [Suspect]
     Indication: ADRENOCORTICAL CARCINOMA
     Dosage: 40.00-MG/M2- /INTRAVENOUS (NOT OTHERWISE SPECIFIED)
     Route: 042
  6. DOXORUBICIN HCL [Suspect]
     Indication: ADRENOCORTICAL CARCINOMA
     Dosage: 20.00-MG/M2 /INTRAVENOUS (NOT OTHERWISE SPECIFIED)
     Route: 042

REACTIONS (3)
  - PNEUMONIA [None]
  - OPPORTUNISTIC INFECTION [None]
  - RESPIRATORY FAILURE [None]
